FAERS Safety Report 17201198 (Version 1)
Quarter: 2020Q1

REPORT INFORMATION
  Report Type: Spontaneous
  Country: US (occurrence: US)
  Receive Date: 20191224
  Receipt Date: 20191224
  Transmission Date: 20200409
  Serious: Yes (Disabling)
  Sender: FDA-Public Use
  Company Number: None

PATIENT
  Age: 41 Year
  Sex: Female
  Weight: 56.25 kg

DRUGS (5)
  1. OMEGA 3/DHA [Concomitant]
  2. CREST WHITE STRIPS [Suspect]
     Active Substance: HYDROGEN PEROXIDE
     Indication: PRODUCT USED FOR UNKNOWN INDICATION
     Dosage: ?          OTHER FREQUENCY:USED TWICE TOTAL;OTHER ROUTE:PLACED OVER TEETH?
     Dates: start: 20190701, end: 20191103
  3. MODAFINAL [Concomitant]
  4. COLLAGEN SUPPLEMENTS [Concomitant]
  5. IUD NOS [Concomitant]
     Active Substance: COPPER OR LEVONORGESTREL

REACTIONS (3)
  - Gingival pain [None]
  - Gingival graft [None]
  - Gingival recession [None]

NARRATIVE: CASE EVENT DATE: 20191103
